FAERS Safety Report 6699428-9 (Version None)
Quarter: 2010Q2

REPORT INFORMATION
  Report Type: 
  Country: None (occurrence: None)
  Receive Date: 20100426
  Receipt Date: 20100413
  Transmission Date: 20101027
  Serious: Yes (Death)
  Sender: FDA-Public Use
  Company Number: UTC-000914

PATIENT
  Age: 73 Year
  Sex: Female
  Weight: 66.2 kg

DRUGS (10)
  1. REMODULIN [Suspect]
     Indication: PULMONARY ARTERIAL HYPERTENSION
     Dosage: 60.84 UG/KG (0.04225 UG/KG,1 IN 1 MIN), SUBCUTANEOUS
     Route: 058
     Dates: start: 20080905
  2. TYVASO [Suspect]
     Indication: PULMONARY ARTERIAL HYPERTENSION
     Dosage: INHALATION
     Route: 055
  3. SINGULAIR [Concomitant]
  4. COUMADIN [Concomitant]
  5. REVATIO (SILDENAFIL CITRATE) (TABLETS) [Concomitant]
  6. LIPITOR [Concomitant]
  7. SPIRONOLACTONE [Concomitant]
  8. KLOR-CON (POTASSIUM CHLORIDE) (TABLETS) [Concomitant]
  9. DILTIA XT (DILTIAZEM HYDROCHLORIDE) (CAPSULES) [Concomitant]
  10. TRACLEER [Concomitant]

REACTIONS (8)
  - DISEASE PROGRESSION [None]
  - DIZZINESS [None]
  - HEAD INJURY [None]
  - HYPOTENSION [None]
  - OXYGEN SATURATION DECREASED [None]
  - PULMONARY ARTERIAL HYPERTENSION [None]
  - RIGHT VENTRICULAR FAILURE [None]
  - SYNCOPE [None]
